FAERS Safety Report 16470627 (Version 15)
Quarter: 2020Q1

REPORT INFORMATION
  Report Type: Report from Study
  Country: US (occurrence: US)
  Receive Date: 20190624
  Receipt Date: 20200303
  Transmission Date: 20200409
  Serious: Yes (Death, Hospitalization)
  Sender: FDA-Public Use
  Company Number: US-ACTELION-A-US2019-192010

PATIENT
  Age: 58 Year
  Sex: Female
  Weight: 79.37 kg

DRUGS (6)
  1. UPTRAVI [Suspect]
     Active Substance: SELEXIPAG
     Indication: PULMONARY ARTERIAL HYPERTENSION
     Dosage: UNK
     Route: 048
  2. VELETRI [Suspect]
     Active Substance: EPOPROSTENOL
     Dosage: 3.77 NG/KG, PER MIN
     Route: 042
  3. WARFARIN [Concomitant]
     Active Substance: WARFARIN
  4. ADEMPAS [Concomitant]
     Active Substance: RIOCIGUAT
  5. VELETRI [Suspect]
     Active Substance: EPOPROSTENOL
     Indication: PULMONARY ARTERIAL HYPERTENSION
     Dosage: 4 NG/KG, PER MIN
     Route: 042
  6. OPSUMIT [Suspect]
     Active Substance: MACITENTAN
     Indication: PULMONARY ARTERIAL HYPERTENSION
     Dosage: 10 MG, QD
     Route: 048
     Dates: start: 20190611, end: 20200125

REACTIONS (55)
  - Hypoglycaemia [Fatal]
  - Renal disorder [Unknown]
  - Dialysis [Recovering/Resolving]
  - Hypotension [Unknown]
  - Peripheral swelling [Unknown]
  - Oedema peripheral [Recovered/Resolved]
  - Tachypnoea [Not Recovered/Not Resolved]
  - Pulmonary oedema [Unknown]
  - Urinary tract infection [Recovered/Resolved]
  - Congenital megaureter [Unknown]
  - Acute kidney injury [Fatal]
  - Adverse event [Unknown]
  - Blood potassium increased [Unknown]
  - Heart rate increased [Unknown]
  - Ureteral stent insertion [Unknown]
  - Pyuria [Unknown]
  - Cardiac arrest [Fatal]
  - Hepatic failure [Unknown]
  - Clostridium difficile infection [Unknown]
  - Oxygen saturation decreased [Unknown]
  - Weight increased [Recovered/Resolved]
  - Pancreatic disorder [Unknown]
  - Flank pain [Unknown]
  - Septic shock [Fatal]
  - Blood creatinine increased [Unknown]
  - Multiple organ dysfunction syndrome [Unknown]
  - Pseudomonas infection [Unknown]
  - Haemodynamic instability [Unknown]
  - Cystoscopy [Unknown]
  - Kidney infection [Fatal]
  - Respiratory failure [Recovered/Resolved]
  - Hydroureter [Unknown]
  - Blood bilirubin increased [Unknown]
  - Dyspnoea [Unknown]
  - Respiratory distress [Not Recovered/Not Resolved]
  - Pyrexia [Recovered/Resolved]
  - Nephrolithiasis [Fatal]
  - Hospitalisation [Unknown]
  - Liver disorder [Unknown]
  - Biopsy liver [Unknown]
  - Pneumonia [Unknown]
  - Cytomegalovirus infection [Unknown]
  - Fatigue [Recovered/Resolved]
  - Fluid retention [Unknown]
  - Haemodialysis [Unknown]
  - Hydronephrosis [Unknown]
  - Disease progression [Unknown]
  - Pain in jaw [Unknown]
  - Pulmonary arterial hypertension [Fatal]
  - Condition aggravated [Recovered/Resolved]
  - Chest discomfort [Recovered/Resolved]
  - Hypoxia [Not Recovered/Not Resolved]
  - Dysuria [Unknown]
  - Hepatic pain [Unknown]
  - Emergency care [Unknown]

NARRATIVE: CASE EVENT DATE: 20190605
